FAERS Safety Report 5640851-9 (Version None)
Quarter: 2008Q1

REPORT INFORMATION
  Report Type: 
  Country: None (occurrence: None)
  Receive Date: 20080225
  Receipt Date: 20080218
  Transmission Date: 20080703
  Serious: Yes (Other)
  Sender: FDA-Public Use
  Company Number: A0710553A

PATIENT
  Sex: Female

DRUGS (3)
  1. ADVAIR DISKUS 100/50 [Suspect]
     Indication: CHRONIC OBSTRUCTIVE PULMONARY DISEASE
     Dosage: TWICE PER DAY / INHALED
     Route: 055
     Dates: start: 20071001, end: 20080216
  2. FLUTICASONE PROPIONATE+SALMETEROL XINAFOATE HFA-CFC FREE INH (FLUTICAS [Suspect]
     Indication: CHRONIC OBSTRUCTIVE PULMONARY DISEASE
     Dosage: INHALED
     Route: 055
     Dates: start: 20080201
  3. TIOTROPIUM [Concomitant]

REACTIONS (8)
  - CANDIDIASIS [None]
  - COUGH [None]
  - DYSPHONIA [None]
  - HYPOTHYROIDISM [None]
  - LARYNGITIS [None]
  - OROPHARYNGEAL CANDIDIASIS [None]
  - OROPHARYNGITIS FUNGAL [None]
  - WEIGHT INCREASED [None]
